FAERS Safety Report 18986472 (Version 1)
Quarter: 2021Q1

REPORT INFORMATION
  Report Type: Spontaneous
  Country: US (occurrence: US)
  Receive Date: 20210309
  Receipt Date: 20210309
  Transmission Date: 20210420
  Serious: Yes (Hospitalization)
  Sender: FDA-Public Use
  Company Number: US-JNJFOC-20210313955

PATIENT
  Sex: Male

DRUGS (1)
  1. XARELTO [Suspect]
     Active Substance: RIVAROXABAN
     Indication: PRODUCT USED FOR UNKNOWN INDICATION
     Dosage: FOR AT LEAST 4 YEARS
     Route: 048

REACTIONS (3)
  - Surgery [Unknown]
  - Product dose omission issue [Unknown]
  - Thrombosis [Unknown]

NARRATIVE: CASE EVENT DATE: 2021
